FAERS Safety Report 9560421 (Version 1)
Quarter: 2013Q3

REPORT INFORMATION
  Report Type: Spontaneous
  Country: US (occurrence: US)
  Receive Date: 20130927
  Receipt Date: 20130927
  Transmission Date: 20140515
  Serious: No
  Sender: FDA-Public Use
  Company Number: US-BIOGENIDEC-2013BI050698

PATIENT
  Age: 36 Year
  Sex: Female

DRUGS (1)
  1. TECFIDERA [Suspect]
     Indication: RELAPSING-REMITTING MULTIPLE SCLEROSIS
     Dates: start: 20130502

REACTIONS (5)
  - Urticaria [Unknown]
  - Flushing [Not Recovered/Not Resolved]
  - Skin reaction [Unknown]
  - Macule [Not Recovered/Not Resolved]
  - Weight increased [Not Recovered/Not Resolved]
